FAERS Safety Report 20726146 (Version 1)
Quarter: 2022Q2

REPORT INFORMATION
  Report Type: Spontaneous
  Country: US (occurrence: None)
  Receive Date: 20220419
  Receipt Date: 20220419
  Transmission Date: 20220721
  Serious: No
  Sender: FDA-Public Use
  Company Number: None

PATIENT
  Age: 64 Year
  Sex: Female
  Weight: 68.04 kg

DRUGS (14)
  1. REBIF [Suspect]
     Active Substance: INTERFERON BETA-1A
     Indication: Multiple sclerosis
     Dosage: OTHER QUANTITY : 44MCG/0.5ML SYRING;?OTHER FREQUENCY : 3W/WK;?
     Route: 058
  2. MYRBETRIQ [Concomitant]
     Active Substance: MIRABEGRON
  3. SIMVASTATIN [Concomitant]
     Active Substance: SIMVASTATIN
  4. METFORMIN [Concomitant]
     Active Substance: METFORMIN HYDROCHLORIDE
  5. DANTROLENE [Concomitant]
     Active Substance: DANTROLENE
  6. ATIVAN [Concomitant]
     Active Substance: LORAZEPAM
  7. SYNTHROID [Concomitant]
     Active Substance: LEVOTHYROXINE SODIUM
  8. PAROXETINE [Concomitant]
     Active Substance: PAROXETINE
  9. ADVIL [Concomitant]
     Active Substance: IBUPROFEN
  10. CALCIUM\VITAMIN D [Concomitant]
     Active Substance: CALCIUM\VITAMIN D
  11. VITAMIN B12 [Concomitant]
     Active Substance: CYANOCOBALAMIN
  12. CRANBERRY [Concomitant]
     Active Substance: CRANBERRY
  13. FLAXSEED [Concomitant]
     Active Substance: FLAX SEED
  14. FISH OIL [Concomitant]
     Active Substance: FISH OIL

REACTIONS (1)
  - COVID-19 [None]
